FAERS Safety Report 5373941-9 (Version None)
Quarter: 2007Q2

REPORT INFORMATION
  Report Type: 
  Country: None (occurrence: None)
  Receive Date: 20070628
  Receipt Date: 20070618
  Transmission Date: 20071010
  Serious: Yes (Hospitalization)
  Sender: FDA-Public Use
  Company Number: US-ELI_LILLY_AND_COMPANY-US200703001956

PATIENT
  Age: 61 Year
  Sex: Female
  Weight: 88.888 kg

DRUGS (10)
  1. ZYPREXA [Suspect]
     Indication: DEPRESSION
     Dosage: 5 MG, UNK
     Dates: start: 19981017, end: 20060615
  2. ZYPREXA [Suspect]
     Dosage: 10 MG, UNK
     Dates: end: 20060615
  3. ARIPIPRAZOLE [Concomitant]
     Dates: start: 20030203
  4. QUETIAPINE [Concomitant]
     Dates: start: 20030909
  5. ZIPRASIDONE [Concomitant]
     Dates: start: 20020124
  6. BUPROPION HYDROCHLORIDE [Concomitant]
     Dates: start: 20050830
  7. FLUOXETINE [Concomitant]
     Dates: start: 20010827
  8. SERTRALINE [Concomitant]
     Dates: start: 19991018, end: 20040325
  9. PREDNISONE TAB [Concomitant]
     Dates: start: 20010523
  10. ALDACTONE [Concomitant]
     Dates: start: 20060901

REACTIONS (12)
  - BILIARY TRACT DISORDER [None]
  - CANDIDIASIS [None]
  - CHOLECYSTECTOMY [None]
  - DEPRESSION [None]
  - DIABETES MELLITUS [None]
  - HYPERLIPIDAEMIA [None]
  - HYPERTENSION [None]
  - METABOLIC DISORDER [None]
  - OBESITY [None]
  - RHEUMATOID ARTHRITIS [None]
  - VISION BLURRED [None]
  - WEIGHT INCREASED [None]
